FAERS Safety Report 7733846-2 (Version None)
Quarter: 2011Q3

REPORT INFORMATION
  Report Type: 
  Country: None (occurrence: None)
  Receive Date: 20110907
  Receipt Date: 20110816
  Transmission Date: 20111222
  Serious: Yes (Death, Other)
  Sender: FDA-Public Use
  Company Number: AT-CELGENEUS-009-50794-11090210

PATIENT

DRUGS (2)
  1. VIDAZA [Suspect]
     Route: 065
     Dates: start: 20070201, end: 20110701
  2. VIDAZA [Suspect]

REACTIONS (6)
  - DEATH [None]
  - ACUTE MYELOID LEUKAEMIA [None]
  - TOXICITY TO VARIOUS AGENTS [None]
  - NO THERAPEUTIC RESPONSE [None]
  - INFECTION [None]
  - DISEASE PROGRESSION [None]
